FAERS Safety Report 4913520-8 (Version None)
Quarter: 2006Q1

REPORT INFORMATION
  Report Type: 
  Country: None (occurrence: None)
  Receive Date: 20060216
  Receipt Date: 20060127
  Transmission Date: 20060701
  Serious: Yes (Hospitalization)
  Sender: FDA-Public Use
  Company Number: PHBS2006CH01483

PATIENT
  Age: 21 Year
  Sex: Male

DRUGS (4)
  1. SANDOSTATIN LAR [Suspect]
     Indication: ACROMEGALY
     Dosage: 50 MG, QMO
     Dates: start: 20041115, end: 20050202
  2. HYDROCORTISONE [Concomitant]
     Dosage: 10 MG/DAY
     Route: 048
     Dates: start: 20041001
  3. ELTROXIN [Concomitant]
     Dosage: 0.05 MG/DAY
     Route: 048
     Dates: start: 20041001
  4. TESTOVIRON [Concomitant]
     Dosage: 250 MG/DAY
     Route: 030
     Dates: start: 20041001

REACTIONS (7)
  - HAEMOGLOBIN DECREASED [None]
  - PANCYTOPENIA [None]
  - PERICARDIAL EFFUSION [None]
  - PLATELET COUNT DECREASED [None]
  - SINUS BRADYCARDIA [None]
  - VENTRICULAR HYPERTROPHY [None]
  - WHITE BLOOD CELL COUNT DECREASED [None]
